FAERS Safety Report 13397245 (Version 1)
Quarter: 2017Q2

REPORT INFORMATION
  Report Type: Spontaneous
  Country: FR (occurrence: FR)
  Receive Date: 20170403
  Receipt Date: 20170403
  Transmission Date: 20170830
  Serious: Yes (Hospitalization)
  Sender: FDA-Public Use
  Company Number: FR-EMD SERONO-8150681

PATIENT
  Age: 35 Year
  Sex: Female

DRUGS (7)
  1. GONADOTROPIN CHORIONIC [Suspect]
     Active Substance: GONADOTROPHIN, CHORIONIC
     Indication: IN VITRO FERTILISATION
     Dosage: GONADOTROPIN CHORIONIC ENDO
     Route: 030
     Dates: start: 20160521
  2. DECAPEPTYL                         /00486501/ [Suspect]
     Active Substance: GONADORELIN
     Indication: IN VITRO FERTILISATION
     Dosage: POWDER AND SOLVENT FOR SOLUTION FOR INJECTION, 1 IN 1 SINGLE DOSE
     Route: 058
     Dates: start: 20160521
  3. ORGALUTRAN [Suspect]
     Active Substance: GANIRELIX ACETATE
     Indication: IN VITRO FERTILISATION
     Dosage: 0.25 MG/0.5 ML
     Route: 058
     Dates: start: 20160517, end: 20160520
  4. PROGESTAN [Suspect]
     Active Substance: PROGESTERONE
     Indication: PRODUCT USED FOR UNKNOWN INDICATION
     Route: 067
     Dates: start: 20160522
  5. GONAL-F [Suspect]
     Active Substance: FOLLITROPIN
     Route: 058
  6. GONAL-F [Suspect]
     Active Substance: FOLLITROPIN
     Route: 058
     Dates: end: 20160520
  7. GONAL-F [Suspect]
     Active Substance: FOLLITROPIN
     Indication: IN VITRO FERTILISATION
     Route: 058
     Dates: start: 20160512

REACTIONS (4)
  - Hyponatraemia [Recovered/Resolved]
  - Subileus [Recovered/Resolved]
  - Ovarian hyperstimulation syndrome [Recovered/Resolved]
  - Ascites [Recovered/Resolved]

NARRATIVE: CASE EVENT DATE: 20160617
